FAERS Safety Report 15116596 (Version 4)
Quarter: 2018Q3

REPORT INFORMATION
  Report Type: Spontaneous
  Country: ES (occurrence: ES)
  Receive Date: 20180706
  Receipt Date: 20180814
  Transmission Date: 20181010
  Serious: Yes (Hospitalization, Other)
  Sender: FDA-Public Use
  Company Number: ES-PFIZER INC-2018271206

PATIENT
  Age: 60 Year
  Sex: Male

DRUGS (5)
  1. ICLUSIG [Suspect]
     Active Substance: PONATINIB
     Indication: CHRONIC MYELOID LEUKAEMIA
     Dosage: 30 MG, QD
     Route: 048
     Dates: start: 20180508, end: 20180513
  2. ICLUSIG [Suspect]
     Active Substance: PONATINIB
     Dosage: 30 MG EVERY 48 HOURS (30MG, QOD)
     Route: 048
     Dates: start: 20180514, end: 20180516
  3. ICLUSIG [Suspect]
     Active Substance: PONATINIB
     Dosage: 30 MG QD
     Route: 048
     Dates: start: 20180528
  4. DEXAMETHASONE. [Suspect]
     Active Substance: DEXAMETHASONE
     Dosage: UNK
  5. VINCRISTINE SULFATE. [Suspect]
     Active Substance: VINCRISTINE SULFATE
     Dosage: UNK

REACTIONS (2)
  - Neutropenia [Recovered/Resolved]
  - Pancytopenia [Recovered/Resolved]

NARRATIVE: CASE EVENT DATE: 20180514
